FAERS Safety Report 10624788 (Version 3)
Quarter: 2015Q4

REPORT INFORMATION
  Report Type: Spontaneous
  Country: US (occurrence: US)
  Receive Date: 20141204
  Receipt Date: 20151218
  Transmission Date: 20160304
  Serious: Yes (Death, Hospitalization, Other)
  Sender: FDA-Public Use
  Company Number: US-009507513-1412USA000724

PATIENT
  Sex: Male

DRUGS (1)
  1. KEYTRUDA [Suspect]
     Active Substance: PEMBROLIZUMAB
     Dosage: UNK
     Dates: start: 201403

REACTIONS (4)
  - Disease progression [Unknown]
  - Infection [Unknown]
  - Death [Fatal]
  - Neoplasm [Recovering/Resolving]

NARRATIVE: CASE EVENT DATE: 2014
